FAERS Safety Report 8347681-8 (Version None)
Quarter: 2012Q2

REPORT INFORMATION
  Report Type: 
  Country: None (occurrence: None)
  Receive Date: 20120509
  Receipt Date: 20120501
  Transmission Date: 20120825
  Serious: Yes (Disabling)
  Sender: FDA-Public Use
  Company Number: US-MERCK-0805USA00683

PATIENT
  Age: 60 Year
  Sex: Female

DRUGS (9)
  1. FOSAMAX [Suspect]
     Indication: PREMATURE MENOPAUSE
     Route: 048
     Dates: start: 20001025, end: 20061001
  2. [THERAPY UNSPECIFIED] [Concomitant]
     Indication: DIABETES MELLITUS
     Route: 065
     Dates: start: 20000301
  3. HORMONES (UNSPECIFIED) [Concomitant]
     Indication: HORMONE REPLACEMENT THERAPY
     Route: 065
     Dates: start: 19980101
  4. FOSAMAX [Suspect]
     Route: 048
     Dates: start: 20001001
  5. FOSAMAX [Suspect]
     Indication: OSTEOPENIA
     Route: 048
     Dates: start: 20001025, end: 20061001
  6. LEVOXYL [Concomitant]
     Indication: HYPOTHYROIDISM
     Route: 065
     Dates: start: 20000101, end: 20011101
  7. AVAPRO [Concomitant]
     Indication: HYPERTENSION
     Route: 065
     Dates: start: 20000101
  8. FOSAMAX [Suspect]
     Route: 048
     Dates: start: 20001001
  9. ZOCOR [Concomitant]
     Indication: BLOOD CHOLESTEROL INCREASED
     Route: 065
     Dates: start: 20000101, end: 20011101

REACTIONS (20)
  - OSTEONECROSIS OF JAW [None]
  - ASTHMA [None]
  - INTERVERTEBRAL DISC PROTRUSION [None]
  - TRIGGER FINGER [None]
  - LIMB INJURY [None]
  - WEIGHT DECREASED [None]
  - ORAL INFECTION [None]
  - EPICONDYLITIS [None]
  - FALL [None]
  - MENISCUS LESION [None]
  - PAIN [None]
  - MUSCLE STRAIN [None]
  - RHINORRHOEA [None]
  - TREMOR [None]
  - JAW DISORDER [None]
  - BLOOD CHOLESTEROL INCREASED [None]
  - TOOTH DISORDER [None]
  - ORAL HERPES [None]
  - ABSCESS [None]
  - HERPES ZOSTER [None]
